FAERS Safety Report 16439400 (Version 2)
Quarter: 2019Q2

REPORT INFORMATION
  Report Type: Report from Study
  Country: DE (occurrence: DE)
  Receive Date: 20190617
  Receipt Date: 20190626
  Transmission Date: 20190711
  Serious: Yes (Hospitalization)
  Sender: FDA-Public Use
  Company Number: DE-ROCHE-2333461

PATIENT
  Age: 64 Year
  Sex: Male

DRUGS (5)
  1. PERTUZUMAB. [Suspect]
     Active Substance: PERTUZUMAB
     Indication: HER-2 POSITIVE GASTRIC CANCER
     Dosage: LAST DOSE ADMINISTERED BEFORE SAE OCCURRED: 02/APR/2019 (DOSE:840MG)
     Route: 042
     Dates: start: 20190213
  2. TRASTUZUMAB. [Suspect]
     Active Substance: TRASTUZUMAB
     Indication: HER-2 POSITIVE GASTRIC CANCER
     Dosage: LAST DOSE ADMINISTERED BEFORE SAE OCCURRED AT 02/APR/2019 (DOSE: 475.20 MG)
     Route: 042
     Dates: start: 20190213
  3. FLUOROURACIL. [Suspect]
     Active Substance: FLUOROURACIL
     Indication: HER-2 POSITIVE GASTRIC CANCER
     Dosage: LAST DOSE ADMINISTERED BEFORE SAE OCCURRED: 02/APR/2019 (DOSE: 5044 MG)?(400 MG/M2 ON DAY 01, THEN 1
     Route: 042
     Dates: start: 20190213
  4. DOCETAXEL. [Suspect]
     Active Substance: DOCETAXEL
     Indication: HER-2 POSITIVE GASTRIC CANCER
     Dosage: LAST DOSE ADMINISTERED BEFORE SAE OCCURRED: 02/APR/2019 (DOSE: 97 MG)
     Route: 042
     Dates: start: 20190213
  5. OXALIPLATIN. [Suspect]
     Active Substance: OXALIPLATIN
     Indication: HER-2 POSITIVE GASTRIC CANCER
     Dosage: LAST DOSE ADMINISTERED BEFORE SAE OCCURRED: 02/APR/2019 (DOSE: 164.90 MG)
     Route: 042
     Dates: start: 20190213

REACTIONS (1)
  - Gastrointestinal stenosis [Recovered/Resolved with Sequelae]

NARRATIVE: CASE EVENT DATE: 20190604
